FAERS Safety Report 8552418-3 (Version None)
Quarter: 2012Q3

REPORT INFORMATION
  Report Type: 
  Country: None (occurrence: None)
  Receive Date: 20120731
  Receipt Date: 20120720
  Transmission Date: 20120928
  Serious: Yes (Other)
  Sender: FDA-Public Use
  Company Number: TR-ACCORD-014127

PATIENT
  Age: 14 Year
  Sex: Female

DRUGS (4)
  1. CYTARABINE [Suspect]
     Dosage: ON DAYS 1 TO 3
  2. IDARUBICIN HCL [Suspect]
     Indication: ACUTE MYELOID LEUKAEMIA
     Dosage: BFM:12MG/M2 ON DAYS 3, 5, AND 7, A1: IDARUBICINE 7MG/M2 INTRAVENOUSLY ON DAYS 3 TO 5
  3. MITOXANTRONE [Suspect]
     Dosage: HAM: 10 MG/ M2 INTRAVENOUSLY ON DAYS 3 AND 4 INTRAVENOUSLY ON DAYS 3 AND 4, HAM: 10 MG/ M2 INTRAV
     Route: 042
  4. ETOPOSIDE [Suspect]
     Dosage: BFM: 150MG/M2 INTRAVENOUSLYON DAYS 6 TO 8, INTESIFICATION: 10MG/M2 INTRAVENOUSLY ON DAYS 2 TO 5
     Route: 042

REACTIONS (2)
  - OFF LABEL USE [None]
  - PALMAR-PLANTAR ERYTHRODYSAESTHESIA SYNDROME [None]
